FAERS Safety Report 17511457 (Version 1)
Quarter: 2020Q1

REPORT INFORMATION
  Report Type: Spontaneous
  Country: FR (occurrence: FR)
  Receive Date: 20200306
  Receipt Date: 20200306
  Transmission Date: 20200409
  Serious: Yes (Hospitalization)
  Sender: FDA-Public Use
  Company Number: FR-PFIZER INC-2020096943

PATIENT
  Age: 3 Year
  Sex: Male
  Weight: 13.1 kg

DRUGS (6)
  1. BACTRIM [Suspect]
     Active Substance: SULFAMETHOXAZOLE\TRIMETHOPRIM
     Indication: NEUROBLASTOMA
     Dosage: 900 MG, WEEKLY
     Route: 048
     Dates: start: 20191227, end: 20200120
  2. NEURONTIN [Suspect]
     Active Substance: GABAPENTIN
     Indication: PAIN
     Dosage: 375 MG, 1X/DAY
     Route: 048
     Dates: start: 20200120
  3. MORPHINE [Suspect]
     Active Substance: MORPHINE
     Indication: PAIN
     Dosage: 0.2 MG, UNK
     Route: 040
     Dates: start: 20200120
  4. SETOFILM [Suspect]
     Active Substance: ONDANSETRON
     Indication: PROPHYLAXIS OF NAUSEA AND VOMITING
     Dosage: 8 MG, 1X/DAY
     Route: 048
     Dates: start: 20200120, end: 20200121
  5. QARZIBA [Suspect]
     Active Substance: DINUTUXIMAB BETA
     Indication: NEUROBLASTOMA
     Dosage: 100 MG/M2, 1X/DAY
     Route: 041
     Dates: start: 20200120, end: 20200130
  6. VOGALENE [Concomitant]
     Active Substance: METOPIMAZINE
     Dosage: UNK

REACTIONS (1)
  - Ventricular tachycardia [Recovered/Resolved]

NARRATIVE: CASE EVENT DATE: 20200121
